FAERS Safety Report 4533728-3 (Version None)
Quarter: 2004Q4

REPORT INFORMATION
  Report Type: 
  Country: None (occurrence: None)
  Receive Date: 20041221
  Receipt Date: 20041215
  Transmission Date: 20050328
  Serious: Yes (Hospitalization)
  Sender: FDA-Public Use
  Company Number: FR-GLAXOSMITHKLINE-B0361801A

PATIENT
  Age: 30 Year
  Sex: Female

DRUGS (1)
  1. CLAMOXYL [Suspect]
     Indication: THREATENED LABOUR
     Dosage: 1G PER DAY
     Route: 042
     Dates: start: 20041205, end: 20041205

REACTIONS (9)
  - ANAPHYLACTIC SHOCK [None]
  - CAESAREAN SECTION [None]
  - DRUG EXPOSURE DURING PREGNANCY [None]
  - FOETAL DISTRESS SYNDROME [None]
  - HYPOTENSION [None]
  - MALAISE [None]
  - PREMATURE LABOUR [None]
  - PRURITUS [None]
  - RASH GENERALISED [None]
